FAERS Safety Report 4506690-7 (Version None)
Quarter: 2004Q4

REPORT INFORMATION
  Report Type: 
  Country: None (occurrence: None)
  Receive Date: 20041122
  Receipt Date: 20041011
  Transmission Date: 20050328
  Serious: Yes (Life-Threatening, Hospitalization)
  Sender: FDA-Public Use
  Company Number: US-MERCK-0410USA01539

PATIENT
  Age: 38 Year
  Sex: Male

DRUGS (4)
  1. VIOXX [Suspect]
     Indication: MONARTHRITIS
     Route: 048
     Dates: start: 20040518, end: 20041001
  2. VIOXX [Suspect]
     Route: 048
     Dates: start: 20040315, end: 20040801
  3. PREVACID [Concomitant]
     Indication: STOMACH DISCOMFORT
     Route: 065
     Dates: start: 20040315
  4. BEXTRA [Concomitant]
     Route: 065
     Dates: start: 20040801

REACTIONS (21)
  - ANXIETY [None]
  - CHEST PAIN [None]
  - CORONARY ARTERY OCCLUSION [None]
  - CORONARY OSTIAL STENOSIS [None]
  - DYSPNOEA [None]
  - DYSPNOEA EXERTIONAL [None]
  - ELECTROCARDIOGRAM Q WAVES [None]
  - ELECTROCARDIOGRAM ST SEGMENT ELEVATION [None]
  - FATIGUE [None]
  - GOITRE [None]
  - HEADACHE [None]
  - INJURY [None]
  - MITRAL VALVE INCOMPETENCE [None]
  - MYALGIA [None]
  - NASAL CONGESTION [None]
  - OEDEMA PERIPHERAL [None]
  - PAIN IN EXTREMITY [None]
  - PALPITATIONS [None]
  - SLEEP DISORDER [None]
  - TRICUSPID VALVE INCOMPETENCE [None]
  - VIRAL INFECTION [None]
